FAERS Safety Report 20723665 (Version 5)
Quarter: 2022Q2

REPORT INFORMATION
  Report Type: Report from Study
  Country: CA (occurrence: CA)
  Receive Date: 20220419
  Receipt Date: 20220601
  Transmission Date: 20220720
  Serious: Yes (Other)
  Sender: FDA-Public Use
  Company Number: CA-JNJFOC-20220401961

PATIENT
  Age: 89 Year
  Sex: Female

DRUGS (1)
  1. SIMPONI [Suspect]
     Active Substance: GOLIMUMAB
     Indication: Rheumatoid arthritis
     Route: 058

REACTIONS (11)
  - Blood pressure systolic increased [Unknown]
  - Rheumatoid arthritis [Not Recovered/Not Resolved]
  - Fracture [Unknown]
  - Osteoarthritis [Unknown]
  - Eye disorder [Unknown]
  - Abdominal distension [Unknown]
  - Arthralgia [Unknown]
  - Cystitis [Not Recovered/Not Resolved]
  - Drug ineffective [Unknown]
  - Peripheral swelling [Unknown]
  - Dizziness [Unknown]

NARRATIVE: CASE EVENT DATE: 20220101
